FAERS Safety Report 8030607-4 (Version None)
Quarter: 2012Q1

REPORT INFORMATION
  Report Type: 
  Country: None (occurrence: None)
  Receive Date: 20120105
  Receipt Date: 20111220
  Transmission Date: 20120608
  Serious: Yes (Other)
  Sender: FDA-Public Use
  Company Number: FK201103088

PATIENT
  Age: 18 Year
  Sex: Male

DRUGS (6)
  1. METHOTREXATE [Suspect]
  2. ETOPOSIDE [Suspect]
  3. IFOSFAMIDE [Suspect]
  4. CISPLATIN [Suspect]
  5. MESNA [Suspect]
  6. DOXORUBICIN HCL [Suspect]

REACTIONS (4)
  - LUNG INFECTION [None]
  - FEBRILE NEUTROPENIA [None]
  - HYPOKALAEMIA [None]
  - HYPOTENSION [None]
